FAERS Safety Report 17533737 (Version 1)
Quarter: 2020Q1

REPORT INFORMATION
  Report Type: Spontaneous
  Country: US (occurrence: US)
  Receive Date: 20200312
  Receipt Date: 20200312
  Transmission Date: 20200409
  Serious: Yes (Other)
  Sender: FDA-Public Use
  Company Number: US-PFIZER INC-2020109580

PATIENT
  Age: 62 Year
  Sex: Female
  Weight: 61 kg

DRUGS (1)
  1. XELJANZ [Suspect]
     Active Substance: TOFACITINIB CITRATE
     Indication: RHEUMATOID ARTHRITIS
     Dosage: 5 MG, DAILY
     Route: 048
     Dates: start: 202001, end: 2020

REACTIONS (6)
  - Dysphagia [Unknown]
  - Infection [Unknown]
  - Fungal infection [Unknown]
  - Dyspnoea [Unknown]
  - Choking [Unknown]
  - Oesophagitis [Unknown]

NARRATIVE: CASE EVENT DATE: 2020
